FAERS Safety Report 4352274-3 (Version None)
Quarter: 2004Q2

REPORT INFORMATION
  Report Type: 
  Country: None (occurrence: None)
  Receive Date: 20040416
  Receipt Date: 20011211
  Transmission Date: 20050107
  Serious: Yes (Hospitalization)
  Sender: FDA-Public Use
  Company Number: 200113539BWH

PATIENT
  Age: 54 Year
  Sex: Male

DRUGS (1)
  1. AVELOX [Suspect]
     Indication: RESPIRATORY TRACT INFECTION
     Dosage: 400 MG, ONCE, ORAL
     Route: 048
     Dates: start: 20010914

REACTIONS (10)
  - ANAPHYLACTIC REACTION [None]
  - EYE IRRITATION [None]
  - HYPERTENSION [None]
  - OEDEMA PERIPHERAL [None]
  - ORAL DISCOMFORT [None]
  - PARAESTHESIA [None]
  - PERIORBITAL OEDEMA [None]
  - SKIN DISCOLOURATION [None]
  - SWELLING FACE [None]
  - URTICARIA [None]
